FAERS Safety Report 7906737-1 (Version None)
Quarter: 2011Q4

REPORT INFORMATION
  Report Type: 
  Country: None (occurrence: None)
  Receive Date: 20111110
  Receipt Date: 20111103
  Transmission Date: 20120403
  Serious: Yes (Hospitalization)
  Sender: FDA-Public Use
  Company Number: DE-UCBSA-044524

PATIENT
  Age: 71 Year
  Sex: Female

DRUGS (14)
  1. NEUPRO [Suspect]
     Route: 062
     Dates: start: 20091001, end: 20100401
  2. NEUPRO [Suspect]
     Route: 062
     Dates: start: 20090701, end: 20091001
  3. LEVOPAR [Concomitant]
     Dosage: FREQUENCY: 1/2-0-0 (100 MG TABLET)
     Dates: start: 20100420, end: 20100430
  4. MADOPAR [Concomitant]
     Dates: start: 20110512
  5. NEUPRO [Suspect]
     Route: 062
     Dates: start: 20091001, end: 20091001
  6. NEUPRO [Suspect]
     Indication: PARKINSON'S DISEASE
     Route: 062
     Dates: start: 20101028, end: 20110512
  7. NEUPRO [Suspect]
     Route: 062
     Dates: start: 20101001, end: 20101001
  8. AZILECT [Concomitant]
     Dates: start: 20110512
  9. MADOPAR LT [Concomitant]
     Dates: start: 20110512
  10. NEUPRO [Suspect]
     Route: 062
     Dates: start: 20101022, end: 20101027
  11. LEVOPAR [Concomitant]
     Dates: end: 20100415
  12. LEVOPAR [Concomitant]
     Dosage: FREQUENCY: 1/2-0-1/2
     Dates: start: 20100416, end: 20100419
  13. AMANTADINE HCL [Concomitant]
     Dates: end: 20091001
  14. AMANTADINE HCL [Concomitant]
     Dates: start: 20101021

REACTIONS (1)
  - CARDIAC DISCOMFORT [None]
